FAERS Safety Report 10213209 (Version 2)
Quarter: 2014Q2

REPORT INFORMATION
  Report Type: Spontaneous
  Country: FR (occurrence: FR)
  Receive Date: 20140603
  Receipt Date: 20140616
  Transmission Date: 20141212
  Serious: Yes (Death)
  Sender: FDA-Public Use
  Company Number: FR-BRISTOL-MYERS SQUIBB COMPANY-20834610

PATIENT
  Age: 80 Year
  Sex: Male
  Weight: 60 kg

DRUGS (7)
  1. ELIQUIS [Suspect]
     Indication: CEREBROVASCULAR ACCIDENT PROPHYLAXIS
     Route: 048
     Dates: start: 20140513
  2. PRAVASTATINE [Concomitant]
     Route: 048
  3. COZAAR [Concomitant]
  4. PARIET [Concomitant]
  5. ALDACTONE [Concomitant]
  6. LASILIX [Concomitant]
  7. OMACOR [Concomitant]

REACTIONS (1)
  - Sudden death [Fatal]
